FAERS Safety Report 23241101 (Version 3)
Quarter: 2024Q1

REPORT INFORMATION
  Report Type: Report from Study
  Country: CA (occurrence: CA)
  Receive Date: 20231129
  Receipt Date: 20240307
  Transmission Date: 20240410
  Serious: Yes (Other)
  Sender: FDA-Public Use
  Company Number: CA-002147023-NVSC2023CA085328

PATIENT
  Sex: Female

DRUGS (1)
  1. ERELZI [Suspect]
     Active Substance: ETANERCEPT-SZZS
     Indication: Rheumatoid arthritis
     Dosage: 50 MG, PRE-FILLED PEN
     Route: 058
     Dates: start: 20210401

REACTIONS (4)
  - Surgery [Unknown]
  - Arthritis [Unknown]
  - Product dose omission issue [Unknown]
  - Drug ineffective [Unknown]
